FAERS Safety Report 6381238-3 (Version None)
Quarter: 2009Q3

REPORT INFORMATION
  Report Type: 
  Country: None (occurrence: None)
  Receive Date: 20090923
  Receipt Date: 20090908
  Transmission Date: 20100115
  Serious: Yes (Hospitalization)
  Sender: FDA-Public Use
  Company Number: DSA_41257_2009

PATIENT
  Sex: Female

DRUGS (8)
  1. ELONTRIL - BUPROPION HYDROCHLORIDE TABLET-EXTENDED RELEASE [Suspect]
     Indication: ANXIETY
     Dosage: 150 MG QD ORAL
     Route: 048
     Dates: start: 20090527, end: 20090616
  2. ELONTRIL - BUPROPION HYDROCHLORIDE TABLET-EXTENDED RELEASE [Suspect]
     Indication: DEPRESSION
     Dosage: 150 MG QD ORAL
     Route: 048
     Dates: start: 20090527, end: 20090616
  3. MIRTAZAPINE [Suspect]
     Indication: DEPRESSION
     Dosage: 7.5 MG QD ORAL, 15 MG QD ORAL
     Route: 048
     Dates: start: 20090527, end: 20090528
  4. MIRTAZAPINE [Suspect]
     Indication: SLEEP DISORDER
     Dosage: 7.5 MG QD ORAL, 15 MG QD ORAL
     Route: 048
     Dates: start: 20090527, end: 20090528
  5. MIRTAZAPINE [Suspect]
     Indication: DEPRESSION
     Dosage: 7.5 MG QD ORAL, 15 MG QD ORAL
     Route: 048
     Dates: start: 20090528, end: 20090625
  6. MIRTAZAPINE [Suspect]
     Indication: SLEEP DISORDER
     Dosage: 7.5 MG QD ORAL, 15 MG QD ORAL
     Route: 048
     Dates: start: 20090528, end: 20090625
  7. AMLODIPINE [Concomitant]
  8. LEVOTHYROXINE SODIUM [Concomitant]

REACTIONS (2)
  - ELECTROCARDIOGRAM QT PROLONGED [None]
  - ELECTROCARDIOGRAM T WAVE INVERSION [None]
